FAERS Safety Report 21298878 (Version 2)
Quarter: 2022Q3

REPORT INFORMATION
  Report Type: Report from Study
  Country: AR (occurrence: AR)
  Receive Date: 20220906
  Receipt Date: 20220920
  Transmission Date: 20221026
  Serious: Yes (Other)
  Sender: FDA-Public Use
  Company Number: AR-NOVARTISPH-NVSC2022AR199264

PATIENT
  Sex: Female

DRUGS (5)
  1. COSENTYX [Suspect]
     Active Substance: SECUKINUMAB
     Indication: Psoriasis
     Dosage: 300 MG, QMO
     Route: 058
     Dates: start: 20171222
  2. EUDON [Concomitant]
     Indication: Nervousness
     Dosage: 1 DOSAGE FORM (HALF AN HOUR BEFORE EATING)
     Route: 048
  3. CLONAGIN [Concomitant]
     Indication: Insomnia
     Dosage: 1 DOSAGE FORM (ONE EVERY NIGHT)
     Route: 048
  4. LEVOTHYROXINE [Concomitant]
     Active Substance: LEVOTHYROXINE
     Indication: Product used for unknown indication
     Dosage: 75 MG, QD (IN THE MORNING)
     Route: 065
  5. LATANOPROST [Concomitant]
     Active Substance: LATANOPROST
     Indication: Product used for unknown indication
     Dosage: UNK (0.5-1, DROP IN EACH EYE), QD
     Route: 065

REACTIONS (6)
  - Retinal vascular thrombosis [Unknown]
  - Visual impairment [Unknown]
  - Glaucoma [Unknown]
  - Vitreous floaters [Unknown]
  - Intraocular pressure increased [Unknown]
  - Eye disorder [Unknown]
